FAERS Safety Report 8389663-6 (Version None)
Quarter: 2012Q2

REPORT INFORMATION
  Report Type: 
  Country: None (occurrence: None)
  Receive Date: 20120528
  Receipt Date: 20120514
  Transmission Date: 20120825
  Serious: Yes (Death, Other)
  Sender: FDA-Public Use
  Company Number: IR-ROCHE-639677

PATIENT

DRUGS (2)
  1. TRIAMCINOLONE ACETONIDE [Suspect]
     Indication: DIABETIC RETINAL OEDEMA
     Route: 050
  2. AVASTIN [Suspect]
     Indication: DIABETIC RETINAL OEDEMA
     Route: 050

REACTIONS (6)
  - LENTICULAR OPACITIES [None]
  - DEATH [None]
  - DIABETIC RETINOPATHY [None]
  - OCULAR HYPERTENSION [None]
  - GLAUCOMA [None]
  - VITREOUS HAEMORRHAGE [None]
